FAERS Safety Report 7675781-4 (Version None)
Quarter: 2011Q3

REPORT INFORMATION
  Report Type: 
  Country: None (occurrence: None)
  Receive Date: 20110810
  Receipt Date: 20110802
  Transmission Date: 20111222
  Serious: Yes (Other)
  Sender: FDA-Public Use
  Company Number: US-RB-025720-11

PATIENT
  Sex: Male

DRUGS (2)
  1. SUBOXONE [Suspect]
     Indication: MATERNAL EXPOSURE DURING PREGNANCY
     Dosage: DOSING INFORMATION UNKNOWN
     Route: 064
     Dates: start: 20100101, end: 20100101
  2. SUBUTEX [Suspect]
     Indication: MATERNAL EXPOSURE DURING PREGNANCY
     Route: 064
     Dates: start: 20100101, end: 20110411

REACTIONS (5)
  - MATERNAL EXPOSURE DURING PREGNANCY [None]
  - INFANTILE SPITTING UP [None]
  - SNEEZING [None]
  - DIARRHOEA [None]
  - POOR SUCKING REFLEX [None]
